FAERS Safety Report 10362057 (Version 1)
Quarter: 2014Q1

REPORT INFORMATION
  Report Type: Spontaneous
  Country: US (occurrence: None)
  Receive Date: 20140306
  Receipt Date: 20140306
  Transmission Date: 20141002
  Serious: Yes (Other)
  Sender: FDA-Public Use
  Company Number: 163-21880-13053541

PATIENT
  Age: 81 Year
  Sex: Female
  Weight: 59.4 kg

DRUGS (7)
  1. REVLIMID (LENALIDOMIDE) (25 MILLIGRAM, CAPSULES) [Suspect]
     Indication: PLASMA CELL MYELOMA
     Route: 048
     Dates: start: 200811, end: 2009
  2. LOSARTAN POTASSIUM (LOSARTAN POTASSIUM) (TABLETS) [Concomitant]
  3. FOLIC ACID (FOLIC ACID) (TABLETS) [Concomitant]
  4. LEVOTHYROXINE (LEVOTHYROXINE) (TABLETS) [Concomitant]
  5. LATANOPROST (LATANOPROST) (0.005 PERCENT, EYE DROPS) [Concomitant]
  6. BENICAR HCT (BENICAR HCT) (TABLETS) [Concomitant]
  7. TRAMADOL HCL (TRAMADOL HYDROCHLORIDE) (UNKNOWN) [Concomitant]

REACTIONS (1)
  - Thrombosis [None]
